FAERS Safety Report 4535606-2 (Version None)
Quarter: 2004Q4

REPORT INFORMATION
  Report Type: 
  Country: None (occurrence: None)
  Receive Date: 20041214
  Receipt Date: 20040915
  Transmission Date: 20050328
  Serious: No
  Sender: FDA-Public Use
  Company Number: USA040977427

PATIENT
  Age: 83 Year
  Sex: Male
  Weight: 82 kg

DRUGS (2)
  1. CIALIS [Suspect]
     Indication: ERECTILE DYSFUNCTION
     Dosage: 20 MG
     Dates: start: 20040801
  2. AGGRENOX [Concomitant]

REACTIONS (2)
  - ASTHENIA [None]
  - BLOOD PRESSURE DECREASED [None]
